FAERS Safety Report 7289060-0 (Version None)
Quarter: 2011Q1

REPORT INFORMATION
  Report Type: 
  Country: None (occurrence: None)
  Receive Date: 20110211
  Receipt Date: 20110208
  Transmission Date: 20110831
  Serious: Yes (Hospitalization, Other)
  Sender: FDA-Public Use
  Company Number: US-PFIZER INC-2010131906

PATIENT
  Sex: Male
  Weight: 80.7 kg

DRUGS (3)
  1. SUTENT [Suspect]
     Indication: METASTATIC RENAL CELL CARCINOMA
     Dosage: 50 MG, 1X/DAY, 4 WEEKS ON, TWO WEEKS OFF
     Route: 048
     Dates: start: 20100920, end: 20101004
  2. SUTENT [Suspect]
     Dosage: 37.5 MG, 1X/DAY
     Route: 048
     Dates: start: 20101101, end: 20101128
  3. NORVASC [Concomitant]
     Indication: HYPERTENSION
     Dosage: 5 MG, 1X/DAY
     Route: 048

REACTIONS (10)
  - PANCYTOPENIA [None]
  - DEHYDRATION [None]
  - RENAL FAILURE CHRONIC [None]
  - NASOPHARYNGITIS [None]
  - GASTROOESOPHAGEAL REFLUX DISEASE [None]
  - STOMATITIS [None]
  - ASTHENIA [None]
  - GAIT DISTURBANCE [None]
  - FALL [None]
  - PYREXIA [None]
